FAERS Safety Report 5837528-3 (Version None)
Quarter: 2008Q3

REPORT INFORMATION
  Report Type: 
  Country: None (occurrence: None)
  Receive Date: 20080807
  Receipt Date: 20080728
  Transmission Date: 20090109
  Serious: Yes (Hospitalization)
  Sender: FDA-Public Use
  Company Number: SK-PFIZER INC-2008060397

PATIENT
  Sex: Female

DRUGS (5)
  1. CLINDAMYCIN HCL [Suspect]
     Indication: INTERTRIGO
     Route: 048
     Dates: start: 20080525, end: 20080530
  2. CADUET [Concomitant]
  3. MICARDIS [Concomitant]
  4. PANZYTRAT [Concomitant]
  5. XYZAL [Concomitant]

REACTIONS (1)
  - TOXIC SKIN ERUPTION [None]
